FAERS Safety Report 25441396 (Version 1)
Quarter: 2025Q2

REPORT INFORMATION
  Report Type: Spontaneous
  Country: DE (occurrence: DE)
  Receive Date: 20250616
  Receipt Date: 20250616
  Transmission Date: 20250716
  Serious: Yes (Hospitalization, Other)
  Sender: MYLAN
  Company Number: None

PATIENT
  Age: 37 Year
  Sex: Male

DRUGS (24)
  1. MIRTAZAPINE [Suspect]
     Active Substance: MIRTAZAPINE
     Indication: Product used for unknown indication
     Dosage: 45 MILLIGRAM, QD
     Dates: start: 20230916, end: 20230918
  2. MIRTAZAPINE [Suspect]
     Active Substance: MIRTAZAPINE
     Dosage: 45 MILLIGRAM, QD
     Route: 048
     Dates: start: 20230916, end: 20230918
  3. MIRTAZAPINE [Suspect]
     Active Substance: MIRTAZAPINE
     Dosage: 45 MILLIGRAM, QD
     Route: 048
     Dates: start: 20230916, end: 20230918
  4. MIRTAZAPINE [Suspect]
     Active Substance: MIRTAZAPINE
     Dosage: 45 MILLIGRAM, QD
     Dates: start: 20230916, end: 20230918
  5. PANTOPRAZOLE SODIUM [Concomitant]
     Active Substance: PANTOPRAZOLE SODIUM
     Indication: Gastrointestinal disorder therapy
     Dosage: 40 MILLIGRAM, QD (FOR ABOUT 1 YEAR - UNTIL FURTHER NOTICE)
  6. PANTOPRAZOLE SODIUM [Concomitant]
     Active Substance: PANTOPRAZOLE SODIUM
     Dosage: 40 MILLIGRAM, QD (FOR ABOUT 1 YEAR - UNTIL FURTHER NOTICE)
     Route: 048
  7. PANTOPRAZOLE SODIUM [Concomitant]
     Active Substance: PANTOPRAZOLE SODIUM
     Dosage: 40 MILLIGRAM, QD (FOR ABOUT 1 YEAR - UNTIL FURTHER NOTICE)
     Route: 048
  8. PANTOPRAZOLE SODIUM [Concomitant]
     Active Substance: PANTOPRAZOLE SODIUM
     Dosage: 40 MILLIGRAM, QD (FOR ABOUT 1 YEAR - UNTIL FURTHER NOTICE)
  9. PREGABALIN [Concomitant]
     Active Substance: PREGABALIN
     Dosage: 150 MILLIGRAM, QD (FOR ABOUT 1 YEAR - UNTIL FURTHER NOTICE)
  10. PREGABALIN [Concomitant]
     Active Substance: PREGABALIN
     Dosage: 150 MILLIGRAM, QD (FOR ABOUT 1 YEAR - UNTIL FURTHER NOTICE)
     Route: 048
  11. PREGABALIN [Concomitant]
     Active Substance: PREGABALIN
     Dosage: 150 MILLIGRAM, QD (FOR ABOUT 1 YEAR - UNTIL FURTHER NOTICE)
     Route: 048
  12. PREGABALIN [Concomitant]
     Active Substance: PREGABALIN
     Dosage: 150 MILLIGRAM, QD (FOR ABOUT 1 YEAR - UNTIL FURTHER NOTICE)
  13. INSULIN NOS [Concomitant]
     Active Substance: INSULIN NOS
     Indication: Type 1 diabetes mellitus
     Dosage: 33 INTERNATIONAL UNIT, QD (FOR ABOUT 1 YEAR - UNTIL FURTHER NOTICE)
  14. INSULIN NOS [Concomitant]
     Active Substance: INSULIN NOS
     Dosage: 33 INTERNATIONAL UNIT, QD (FOR ABOUT 1 YEAR - UNTIL FURTHER NOTICE)
     Route: 058
  15. INSULIN NOS [Concomitant]
     Active Substance: INSULIN NOS
     Dosage: 33 INTERNATIONAL UNIT, QD (FOR ABOUT 1 YEAR - UNTIL FURTHER NOTICE)
     Route: 058
  16. INSULIN NOS [Concomitant]
     Active Substance: INSULIN NOS
     Dosage: 33 INTERNATIONAL UNIT, QD (FOR ABOUT 1 YEAR - UNTIL FURTHER NOTICE)
  17. DULOXETINE [Concomitant]
     Active Substance: DULOXETINE
     Dosage: 120 MILLIGRAM, QD (FOR ABOUT 1 YEAR - UNTIL FURTHER NOTICE)
  18. DULOXETINE [Concomitant]
     Active Substance: DULOXETINE
     Dosage: 120 MILLIGRAM, QD (FOR ABOUT 1 YEAR - UNTIL FURTHER NOTICE)
     Route: 048
  19. DULOXETINE [Concomitant]
     Active Substance: DULOXETINE
     Dosage: 120 MILLIGRAM, QD (FOR ABOUT 1 YEAR - UNTIL FURTHER NOTICE)
     Route: 048
  20. DULOXETINE [Concomitant]
     Active Substance: DULOXETINE
     Dosage: 120 MILLIGRAM, QD (FOR ABOUT 1 YEAR - UNTIL FURTHER NOTICE)
  21. PANCRELIPASE [Concomitant]
     Active Substance: PANCRELIPASE
     Indication: Pancreatitis chronic
     Dosage: 40000 INTERNATIONAL UNIT, QD (FOR ABOUT 1 YEAR - UNTIL FURTHER NOTICE)
  22. PANCRELIPASE [Concomitant]
     Active Substance: PANCRELIPASE
     Dosage: 40000 INTERNATIONAL UNIT, QD (FOR ABOUT 1 YEAR - UNTIL FURTHER NOTICE)
     Route: 065
  23. PANCRELIPASE [Concomitant]
     Active Substance: PANCRELIPASE
     Dosage: 40000 INTERNATIONAL UNIT, QD (FOR ABOUT 1 YEAR - UNTIL FURTHER NOTICE)
     Route: 065
  24. PANCRELIPASE [Concomitant]
     Active Substance: PANCRELIPASE
     Dosage: 40000 INTERNATIONAL UNIT, QD (FOR ABOUT 1 YEAR - UNTIL FURTHER NOTICE)

REACTIONS (3)
  - Enuresis [Recovered/Resolved]
  - Night sweats [Recovered/Resolved]
  - Nightmare [Recovered/Resolved]

NARRATIVE: CASE EVENT DATE: 20230916
